FAERS Safety Report 10022776 (Version 1)
Quarter: 2014Q1

REPORT INFORMATION
  Report Type: Spontaneous
  Country: US (occurrence: US)
  Receive Date: 20140319
  Receipt Date: 20140319
  Transmission Date: 20141002
  Serious: Yes (Other)
  Sender: FDA-Public Use
  Company Number: US-PFIZER INC-2014078485

PATIENT
  Age: 51 Year
  Sex: Male
  Weight: 77.55 kg

DRUGS (3)
  1. LYRICA [Suspect]
     Indication: DIABETIC NEUROPATHY
     Dosage: 50 MG, 3X/DAY
     Route: 048
     Dates: end: 2014
  2. METFORMIN [Concomitant]
     Dosage: 500 MG, 2X/DAY
  3. GLYBURIDE [Concomitant]
     Dosage: 6 MG, 2X/DAY

REACTIONS (1)
  - Coronary artery occlusion [Unknown]
